FAERS Safety Report 6380719-6 (Version None)
Quarter: 2009Q3

REPORT INFORMATION
  Report Type: 
  Country: None (occurrence: None)
  Receive Date: 20090924
  Receipt Date: 20090918
  Transmission Date: 20100115
  Serious: Yes (Death, Hospitalization, Other)
  Sender: FDA-Public Use
  Company Number: 2009US002446

PATIENT
  Age: 52 Year
  Sex: Male

DRUGS (12)
  1. PROGRAF [Suspect]
     Indication: RENAL TRANSPLANT
     Dosage: 3 MG, BID, ORAL; 1 MG, BID, ORAL
     Route: 048
     Dates: end: 20090606
  2. CELLCEPT (MYCOPHENOLATE MOFETIL) TABLET [Concomitant]
  3. MYFORTIC [Concomitant]
  4. ULTRASE (PROTEASE) [Concomitant]
  5. LOMOTIL (DIPHENOXYLATE HYDROCHLORIDE) TABLET [Concomitant]
  6. VITAMINS [Concomitant]
  7. ASCORBIC ACID [Concomitant]
  8. ZINC (ZINC) [Concomitant]
  9. LYRICA [Concomitant]
  10. PREDNISONE TAB [Concomitant]
  11. SYNTHROID [Concomitant]
  12. HYDROCODONE (HYDROCODONE) [Concomitant]

REACTIONS (14)
  - ARRHYTHMIA [None]
  - CARDIAC ARREST [None]
  - CEREBROVASCULAR ACCIDENT [None]
  - DEPRESSION [None]
  - DYSLIPIDAEMIA [None]
  - HYPERTENSION [None]
  - HYPOTHYROIDISM [None]
  - NEUROGENIC BLADDER [None]
  - PAIN [None]
  - PERIPHERAL VASCULAR DISORDER [None]
  - PYURIA [None]
  - RENAL FAILURE ACUTE [None]
  - RENAL FAILURE CHRONIC [None]
  - UROSEPSIS [None]
